FAERS Safety Report 15585283 (Version 1)
Quarter: 2018Q4

REPORT INFORMATION
  Report Type: Report from Study
  Country: IN (occurrence: IN)
  Receive Date: 20181105
  Receipt Date: 20181105
  Transmission Date: 20190205
  Serious: Yes (Other)
  Sender: FDA-Public Use
  Company Number: IN-ROCHE-2210742

PATIENT
  Age: 67 Year
  Sex: Male

DRUGS (1)
  1. ACCENTRIX [Suspect]
     Active Substance: RANIBIZUMAB
     Indication: AGE-RELATED MACULAR DEGENERATION
     Route: 031
     Dates: start: 20181012

REACTIONS (1)
  - Macular oedema [Unknown]
